FAERS Safety Report 21211244 (Version 1)
Quarter: 2022Q3

REPORT INFORMATION
  Report Type: Spontaneous
  Country: US (occurrence: None)
  Receive Date: 20220815
  Receipt Date: 20220815
  Transmission Date: 20221027
  Serious: Yes (Death, Other)
  Sender: FDA-Public Use
  Company Number: US-ROCHE-3123280

PATIENT
  Age: 96 Year
  Sex: Male

DRUGS (4)
  1. ERIVEDGE [Suspect]
     Active Substance: VISMODEGIB
     Indication: Basal cell carcinoma
     Dosage: TAKE 1 CAPSULE
     Route: 048
  2. ERIVEDGE [Suspect]
     Active Substance: VISMODEGIB
     Indication: Neovascular age-related macular degeneration
  3. ERIVEDGE [Suspect]
     Active Substance: VISMODEGIB
     Indication: Choroidal neovascularisation
  4. ERIVEDGE [Suspect]
     Active Substance: VISMODEGIB
     Indication: Skin cancer

REACTIONS (5)
  - Death [Fatal]
  - Hypersomnia [Recovered/Resolved]
  - Asthenia [Recovered/Resolved]
  - Parkinson^s disease [Unknown]
  - Hypertension [Unknown]

NARRATIVE: CASE EVENT DATE: 20220607
